FAERS Safety Report 23906022 (Version 2)
Quarter: 2024Q4

REPORT INFORMATION
  Report Type: Report from Study
  Country: US (occurrence: US)
  Receive Date: 20240527
  Receipt Date: 20241213
  Transmission Date: 20250114
  Serious: Yes (Other)
  Sender: ABBVIE
  Company Number: US-ABBVIE-5775665

PATIENT
  Age: 62 Year
  Sex: Female

DRUGS (1)
  1. CREON [Suspect]
     Active Substance: PANCRELIPASE AMYLASE\PANCRELIPASE LIPASE\PANCRELIPASE PROTEASE
     Indication: Product used for unknown indication
     Route: 048

REACTIONS (3)
  - Cerebrovascular accident [Unknown]
  - Blood urine present [Not Recovered/Not Resolved]
  - Cholecystectomy [Not Recovered/Not Resolved]

NARRATIVE: CASE EVENT DATE: 20240401
